FAERS Safety Report 21054234 (Version 2)
Quarter: 2022Q3

REPORT INFORMATION
  Report Type: Spontaneous
  Country: GB (occurrence: GB)
  Receive Date: 20220707
  Receipt Date: 20220721
  Transmission Date: 20221026
  Serious: Yes (Hospitalization, Other)
  Sender: FDA-Public Use
  Company Number: None

PATIENT
  Age: 87 Year
  Sex: Male

DRUGS (28)
  1. RANEXA [Suspect]
     Active Substance: RANOLAZINE
     Indication: Product used for unknown indication
     Dosage: 375 UG, BID
     Route: 065
  2. ASPIRIN [Suspect]
     Active Substance: ASPIRIN
     Indication: Acute coronary syndrome
     Dosage: 75 MG
     Route: 065
  3. ASPIRIN [Suspect]
     Active Substance: ASPIRIN
     Indication: Atrial fibrillation
  4. ATORVASTATIN [Concomitant]
     Active Substance: ATORVASTATIN
     Indication: Product used for unknown indication
     Dosage: 40 MG, QD EVERY NIGHT
     Route: 065
  5. CLOPIDOGREL [Suspect]
     Active Substance: CLOPIDOGREL BISULFATE
     Indication: Acute coronary syndrome
     Dosage: UNK
     Route: 065
  6. CLOPIDOGREL [Suspect]
     Active Substance: CLOPIDOGREL BISULFATE
     Indication: Atrial fibrillation
  7. EDOXABAN [Suspect]
     Active Substance: EDOXABAN
     Indication: Acute coronary syndrome
     Dosage: UNK
     Route: 065
  8. EDOXABAN [Suspect]
     Active Substance: EDOXABAN
     Indication: Atrial fibrillation
  9. AZITHROMYCIN [Concomitant]
     Active Substance: AZITHROMYCIN
     Indication: Product used for unknown indication
     Dosage: 250 MG, THREE TIMES A WEEK
     Route: 065
  10. BECLOMETHASONE DIPROPIONATE\FORMOTEROL FUMARATE\GLYCOPYRROLATE [Concomitant]
     Active Substance: BECLOMETHASONE DIPROPIONATE\FORMOTEROL FUMARATE\GLYCOPYRROLATE
     Indication: Product used for unknown indication
     Dosage: 2 DOSAGE FORM, BID
     Route: 055
  11. WARFARIN [Concomitant]
     Active Substance: WARFARIN
     Indication: Product used for unknown indication
     Dosage: UNK
     Route: 065
  12. INSULIN HUMAN [Concomitant]
     Active Substance: INSULIN HUMAN
     Dosage: 100UNIT/ML ^- 40 UNITS, EVERY MORNING
  13. CO-DYDRAMOL [Concomitant]
     Active Substance: ACETAMINOPHEN\DIHYDROCODEINE
     Dosage: 10MG/500MG,  4  TIMES  DAILY AS  NEEDED
  14. CO-DYDRAMOL [Concomitant]
     Active Substance: ACETAMINOPHEN\DIHYDROCODEINE
     Dosage: 10MG/500MG, 2 TABLETS, 4 TIMES DAILY, AS NEEDED
     Route: 065
  15. LACTULOSE [Concomitant]
     Active Substance: LACTULOSE
     Dosage: 10 ML
  16. ALBUTEROL [Concomitant]
     Active Substance: ALBUTEROL
     Dosage: 100 UG
  17. ALBUTEROL [Concomitant]
     Active Substance: ALBUTEROL
     Dosage: 100 UG
  18. LANSOPRAZOLE [Concomitant]
     Active Substance: LANSOPRAZOLE
     Dosage: 15 MG
  19. ACETAMINOPHEN [Concomitant]
     Active Substance: ACETAMINOPHEN
     Dosage: 1 G
  20. AMITRIPTYLINE [Concomitant]
     Active Substance: AMITRIPTYLINE
     Dosage: 35 MG, QD EVERY NIGHT
  21. CARBOCYSTEINE [Concomitant]
     Active Substance: CARBOCYSTEINE
     Dosage: 750 MG
  22. DIGOXIN [Concomitant]
     Active Substance: DIGOXIN
     Dosage: 150 UG, QD
  23. DOCUSATE [Concomitant]
     Active Substance: DOCUSATE
     Dosage: 100 MG
  24. CALCIUM CARBONATE\CHOLECALCIFEROL [Concomitant]
     Active Substance: CALCIUM CARBONATE\CHOLECALCIFEROL
     Dosage: UNK
  25. FUROSEMIDE [Concomitant]
     Active Substance: FUROSEMIDE
     Dosage: 40 MG
  26. METFORMIN [Concomitant]
     Active Substance: METFORMIN HYDROCHLORIDE
     Dosage: 500 MG
  27. NITROGLYCERIN [Concomitant]
     Active Substance: NITROGLYCERIN
     Route: 060
  28. SENNA LEAF [Concomitant]
     Active Substance: SENNA LEAF
     Dosage: 7.5 MG, EVERY NIGHT

REACTIONS (1)
  - Epistaxis [Recovered/Resolved]
